FAERS Safety Report 24397486 (Version 1)
Quarter: 2024Q4

REPORT INFORMATION
  Report Type: Spontaneous
  Country: US (occurrence: US)
  Receive Date: 20241004
  Receipt Date: 20241004
  Transmission Date: 20250115
  Serious: No
  Sender: AMGEN
  Company Number: US-AMGEN-USASP2024196152

PATIENT
  Age: 70 Year
  Sex: Female

DRUGS (5)
  1. REPATHA [Suspect]
     Active Substance: EVOLOCUMAB
     Indication: Product used for unknown indication
     Dosage: 140 MILLIGRAM, (STRENGTH:140MG)
     Route: 058
     Dates: start: 2024
  2. REPATHA [Suspect]
     Active Substance: EVOLOCUMAB
     Dosage: UNK, UNK
     Route: 058
  3. REPATHA [Suspect]
     Active Substance: EVOLOCUMAB
     Dosage: UNK, UNK
     Route: 058
  4. REPATHA [Suspect]
     Active Substance: EVOLOCUMAB
     Dosage: UNK, UNK
     Route: 058
  5. MOUNJARO [Concomitant]
     Active Substance: TIRZEPATIDE
     Indication: Diabetes mellitus
     Dosage: 10 MILLIGRAM
     Route: 065

REACTIONS (3)
  - Device difficult to use [Unknown]
  - Drug dose omission by device [Unknown]
  - Wrong technique in product usage process [Unknown]

NARRATIVE: CASE EVENT DATE: 20240101
